FAERS Safety Report 25321188 (Version 1)
Quarter: 2025Q2

REPORT INFORMATION
  Report Type: Report from Study
  Country: US (occurrence: US)
  Receive Date: 20250515
  Receipt Date: 20250515
  Transmission Date: 20250716
  Serious: Yes (Other)
  Sender: ABBVIE
  Company Number: US-ABBVIE-6279272

PATIENT
  Age: 57 Year
  Sex: Male

DRUGS (2)
  1. HUMIRA [Suspect]
     Active Substance: ADALIMUMAB
     Indication: Granuloma annulare
     Route: 058
     Dates: start: 20241220, end: 202502
  2. HUMIRA [Suspect]
     Active Substance: ADALIMUMAB
     Route: 058
     Dates: start: 202504

REACTIONS (3)
  - Deafness [Not Recovered/Not Resolved]
  - Product use in unapproved indication [Unknown]
  - Shoulder operation [Unknown]

NARRATIVE: CASE EVENT DATE: 20241220
